FAERS Safety Report 13152363 (Version 2)
Quarter: 2017Q1

REPORT INFORMATION
  Report Type: Report from Study
  Country: JP (occurrence: JP)
  Receive Date: 20170125
  Receipt Date: 20170206
  Transmission Date: 20170428
  Serious: Yes (Hospitalization, Other)
  Sender: FDA-Public Use
  Company Number: JP-TAKEDA-2017TJP001257

PATIENT
  Age: 43 Year
  Sex: Female
  Weight: 74.6 kg

DRUGS (11)
  1. VEDOLIZUMAB [Suspect]
     Active Substance: VEDOLIZUMAB
     Indication: CROHN^S DISEASE
     Dosage: 300 MG, UNK
     Route: 041
     Dates: start: 20160217, end: 20160330
  2. PARIET [Concomitant]
     Active Substance: RABEPRAZOLE SODIUM
     Indication: PROPHYLAXIS
     Dosage: 10 MG, QD
     Route: 048
  3. LOXONIN [Concomitant]
     Active Substance: LOXOPROFEN SODIUM
     Indication: HEADACHE
     Dosage: 60 MG, UNK
     Route: 048
     Dates: start: 20160706
  4. MIYA-BM [Concomitant]
     Active Substance: CLOSTRIDIUM BUTYRICUM SPORES STRAIN M-55
     Indication: CROHN^S DISEASE
     Dosage: UNK, TID
     Route: 048
  5. MLN0002 [Suspect]
     Active Substance: VEDOLIZUMAB
     Indication: CROHN^S DISEASE
     Dosage: 300 MG, UNK
     Route: 041
     Dates: start: 20160427
  6. PENTASA [Concomitant]
     Active Substance: MESALAMINE
     Indication: CROHN^S DISEASE
     Dosage: 1 G, TID
     Route: 048
  7. AZANIN [Concomitant]
     Active Substance: AZATHIOPRINE
     Indication: CROHN^S DISEASE
     Dosage: 50 MG, QD
     Route: 048
  8. ZYPREXA [Concomitant]
     Active Substance: OLANZAPINE
     Indication: DEPRESSION
     Dosage: 5 MG, QD
     Route: 048
  9. HALCION [Concomitant]
     Active Substance: TRIAZOLAM
     Indication: SLEEP DISORDER
     Dosage: 0.5 MG, QD
     Route: 048
  10. SELENICA-R [Concomitant]
     Active Substance: VALPROATE SODIUM
     Indication: DEPRESSION
     Dosage: 200 MG, QD
     Route: 048
  11. SOLANAX [Concomitant]
     Active Substance: ALPRAZOLAM
     Indication: DEPRESSION
     Dosage: 0.4 MG, UNK
     Route: 048

REACTIONS (1)
  - Ileus [Recovered/Resolved]

NARRATIVE: CASE EVENT DATE: 20170120
